FAERS Safety Report 9855120 (Version 2)
Quarter: 2014Q1

REPORT INFORMATION
  Report Type: Spontaneous
  Country: SE (occurrence: SE)
  Receive Date: 20140130
  Receipt Date: 20140206
  Transmission Date: 20141002
  Serious: Yes (Other)
  Sender: FDA-Public Use
  Company Number: SE-009507513-1401SWE010249

PATIENT
  Age: 22 Year
  Sex: Female

DRUGS (3)
  1. NEXPLANON [Suspect]
     Indication: CONTRACEPTION
     Dosage: UNK
     Dates: start: 20130123
  2. NEXPLANON [Suspect]
     Dosage: UNK
  3. NEXPLANON [Suspect]
     Dosage: UNK

REACTIONS (7)
  - Abortion spontaneous [Recovered/Resolved]
  - Unintended pregnancy [Recovered/Resolved]
  - Amenorrhoea [Recovered/Resolved]
  - Metrorrhagia [Recovered/Resolved]
  - Nausea [Recovered/Resolved]
  - Amenorrhoea [Unknown]
  - Haemorrhage [Recovered/Resolved]
